FAERS Safety Report 8525839-2 (Version None)
Quarter: 2012Q3

REPORT INFORMATION
  Report Type: 
  Country: None (occurrence: None)
  Receive Date: 20120720
  Receipt Date: 20120711
  Transmission Date: 20120928
  Serious: Yes (Other)
  Sender: FDA-Public Use
  Company Number: US-ELI_LILLY_AND_COMPANY-US201205002546

PATIENT
  Sex: Female
  Weight: 92.971 kg

DRUGS (6)
  1. LISINOPRIL                              /USA/ [Concomitant]
  2. SINGULAIR [Concomitant]
  3. SYMBICORT [Concomitant]
     Dosage: UNK
  4. BYDUREON [Suspect]
     Indication: TYPE 2 DIABETES MELLITUS
     Dosage: 2 MG, WEEKLY (1/W)
     Route: 058
     Dates: start: 20120427, end: 20120522
  5. VYTORIN [Concomitant]
  6. JANUVIA [Concomitant]
     Dosage: UNK
     Route: 048

REACTIONS (7)
  - ABDOMINAL TENDERNESS [None]
  - FALL [None]
  - ABDOMINAL DISTENSION [None]
  - LOCAL SWELLING [None]
  - CONTUSION [None]
  - CHRONIC LYMPHOCYTIC LEUKAEMIA [None]
  - INJECTION SITE PAIN [None]
